FAERS Safety Report 19811721 (Version 1)
Quarter: 2021Q3

REPORT INFORMATION
  Report Type: Spontaneous
  Country: US (occurrence: US)
  Receive Date: 20210910
  Receipt Date: 20210910
  Transmission Date: 20211014
  Serious: No
  Sender: FDA-Public Use
  Company Number: US-ROCHE-2760093

PATIENT
  Age: 22 Year
  Sex: Female

DRUGS (1)
  1. PEGASYS [Suspect]
     Active Substance: PEGINTERFERON ALFA-2A
     Indication: PRODUCT USED FOR UNKNOWN INDICATION
     Dosage: PEGASYS SDV 180MCG/ML FREQUENCY: OTHER
     Route: 058
     Dates: start: 202012, end: 202101

REACTIONS (1)
  - Depression [Unknown]

NARRATIVE: CASE EVENT DATE: 20210128
